FAERS Safety Report 12578836 (Version 3)
Quarter: 2016Q4

REPORT INFORMATION
  Report Type: Spontaneous
  Country: US (occurrence: US)
  Receive Date: 20160721
  Receipt Date: 20161209
  Transmission Date: 20170207
  Serious: No
  Sender: FDA-Public Use
  Company Number: US-PFIZER INC-2016318574

PATIENT
  Age: 68 Year
  Sex: Male

DRUGS (1)
  1. XELJANZ [Suspect]
     Active Substance: TOFACITINIB CITRATE
     Indication: RHEUMATOID ARTHRITIS
     Dosage: 5 MG, 2X/DAY
     Dates: start: 20160805

REACTIONS (5)
  - Chest pain [Unknown]
  - Back pain [Unknown]
  - Asthenia [Unknown]
  - Dizziness [Unknown]
  - Bronchitis [Unknown]

NARRATIVE: CASE EVENT DATE: 20161127
